FAERS Safety Report 15234701 (Version 3)
Quarter: 2019Q2

REPORT INFORMATION
  Report Type: Report from Study
  Country: BR (occurrence: BR)
  Receive Date: 20180803
  Receipt Date: 20190423
  Transmission Date: 20190711
  Serious: Yes (Other)
  Sender: FDA-Public Use
  Company Number: BR-EMD SERONO-E2B_90048137

PATIENT
  Age: 51 Year
  Sex: Female
  Weight: 76 kg

DRUGS (2)
  1. REBIF [Suspect]
     Active Substance: INTERFERON BETA-1A
     Route: 058
     Dates: start: 20110430, end: 20190324
  2. REBIF [Suspect]
     Active Substance: INTERFERON BETA-1A
     Indication: MULTIPLE SCLEROSIS
     Route: 058
     Dates: start: 2006, end: 2011

REACTIONS (14)
  - Hepatic steatosis [Unknown]
  - Headache [Unknown]
  - Aspartate aminotransferase increased [Unknown]
  - Dyskinesia [Unknown]
  - Gamma-glutamyltransferase increased [Unknown]
  - High density lipoprotein decreased [Unknown]
  - Blood cholesterol increased [Unknown]
  - Blood triglycerides increased [Unknown]
  - Malaise [Unknown]
  - Memory impairment [Unknown]
  - Emotional distress [Unknown]
  - Blood pressure abnormal [Recovered/Resolved]
  - Eye pain [Not Recovered/Not Resolved]
  - Dizziness [Recovered/Resolved]

NARRATIVE: CASE EVENT DATE: 2018
